FAERS Safety Report 5973088-4 (Version None)
Quarter: 2008Q4

REPORT INFORMATION
  Report Type: 
  Country: None (occurrence: None)
  Receive Date: 20081201
  Receipt Date: 20081118
  Transmission Date: 20090506
  Serious: Yes (Other)
  Sender: FDA-Public Use
  Company Number: US-ROCHE-552235

PATIENT
  Sex: Male
  Weight: 61.2 kg

DRUGS (1)
  1. ACCUTANE [Suspect]
     Indication: ACNE
     Dosage: SEE NARRATIVE FOR MORE DETAILED DESCRIPTION OF DOSING REGIMEN.
     Route: 048
     Dates: start: 19970605, end: 19971107

REACTIONS (15)
  - ACNE [None]
  - ANXIETY [None]
  - ARTHRALGIA [None]
  - CROHN'S DISEASE [None]
  - DEPRESSION [None]
  - DRY SKIN [None]
  - EPISTAXIS [None]
  - FATIGUE [None]
  - HEADACHE [None]
  - HEPATITIS [None]
  - INFLAMMATORY BOWEL DISEASE [None]
  - IRITIS [None]
  - MOOD SWINGS [None]
  - TRANSAMINASES INCREASED [None]
  - ULCER [None]
